FAERS Safety Report 5498934-2 (Version None)
Quarter: 2007Q4

REPORT INFORMATION
  Report Type: 
  Country: None (occurrence: None)
  Receive Date: 20071026
  Receipt Date: 20070507
  Transmission Date: 20080405
  Serious: No
  Sender: FDA-Public Use
  Company Number: A0650261A

PATIENT
  Age: 84 Year
  Sex: Male

DRUGS (10)
  1. ADVAIR DISKUS 100/50 [Suspect]
     Indication: CHRONIC OBSTRUCTIVE PULMONARY DISEASE
     Route: 055
     Dates: start: 20030101
  2. NYSTATINE [Concomitant]
  3. COUMADIN [Concomitant]
  4. WARFARIN [Concomitant]
  5. CARDIZEM [Concomitant]
  6. MONOPRIL [Concomitant]
  7. FUROSEMIDE INTENSOL [Concomitant]
  8. TOBRADEX [Concomitant]
  9. UNKNOWN MEDICATION [Concomitant]
  10. ALBUTEROL [Concomitant]

REACTIONS (3)
  - DYSPHONIA [None]
  - ORAL CANDIDIASIS [None]
  - PHARYNGOLARYNGEAL PAIN [None]
